FAERS Safety Report 5487195-6 (Version None)
Quarter: 2007Q4

REPORT INFORMATION
  Report Type: 
  Country: None (occurrence: None)
  Receive Date: 20071016
  Receipt Date: 20071004
  Transmission Date: 20080405
  Serious: Yes (Other)
  Sender: FDA-Public Use
  Company Number: US-ELI_LILLY_AND_COMPANY-US200710001565

PATIENT
  Age: 31 Year
  Sex: Female
  Weight: 79.365 kg

DRUGS (5)
  1. CYMBALTA [Suspect]
     Indication: FIBROMYALGIA
     Dosage: 20 MG, DAILY (1/D)
     Route: 048
     Dates: start: 20070801, end: 20070827
  2. CYMBALTA [Suspect]
     Dosage: 40 MG, DAILY (1/D)
     Route: 048
     Dates: start: 20070813, end: 20070827
  3. TRAMADOL HCL [Concomitant]
     Indication: FIBROMYALGIA
     Dosage: 100 MG, DAILY (1/D)
  4. CLONAZEPAM [Concomitant]
     Indication: RESTLESS LEGS SYNDROME
     Dosage: 0.25 MG, DAILY (1/D)
  5. ZYRTEC [Concomitant]
     Dosage: 10 MG, DAILY (1/D)

REACTIONS (41)
  - ABNORMAL DREAMS [None]
  - ACNE [None]
  - CHILLS [None]
  - COGNITIVE DISORDER [None]
  - DEPRESSED MOOD [None]
  - DIARRHOEA [None]
  - DISTURBANCE IN ATTENTION [None]
  - DIZZINESS [None]
  - DRUG INEFFECTIVE [None]
  - DYSPEPSIA [None]
  - EYE DISORDER [None]
  - FATIGUE [None]
  - FEELING ABNORMAL [None]
  - FEELING COLD [None]
  - GINGIVAL BLEEDING [None]
  - GRIP STRENGTH DECREASED [None]
  - HALLUCINATION [None]
  - HEADACHE [None]
  - HYPERACUSIS [None]
  - HYPERHIDROSIS [None]
  - IRRITABILITY [None]
  - LISTLESS [None]
  - MEMORY IMPAIRMENT [None]
  - MIDDLE INSOMNIA [None]
  - MOOD ALTERED [None]
  - MUSCLE SPASMS [None]
  - MUSCULOSKELETAL CHEST PAIN [None]
  - MUSCULOSKELETAL STIFFNESS [None]
  - NEURALGIA [None]
  - NIGHT SWEATS [None]
  - OILY SKIN [None]
  - PAIN [None]
  - PARAESTHESIA [None]
  - PAROSMIA [None]
  - PHOTOPHOBIA [None]
  - POLLAKIURIA [None]
  - POOR QUALITY SLEEP [None]
  - RHINORRHOEA [None]
  - SENSATION OF FOREIGN BODY [None]
  - TRISMUS [None]
  - VISUAL DISTURBANCE [None]
